FAERS Safety Report 7878554-2 (Version None)
Quarter: 2011Q4

REPORT INFORMATION
  Report Type: 
  Country: None (occurrence: None)
  Receive Date: 20111014
  Receipt Date: 20110526
  Transmission Date: 20120403
  Serious: Yes (Other)
  Sender: FDA-Public Use
  Company Number: 1000021173

PATIENT
  Age: 9 Year
  Sex: Male

DRUGS (3)
  1. NASONEX [Suspect]
     Dosage: NASAL
  2. LEXAPRO [Suspect]
  3. ASMANEX TWISTHALER [Suspect]

REACTIONS (2)
  - AGGRESSION [None]
  - INCORRECT ROUTE OF DRUG ADMINISTRATION [None]
